FAERS Safety Report 24889600 (Version 1)
Quarter: 2025Q1

REPORT INFORMATION
  Report Type: Spontaneous
  Country: US (occurrence: US)
  Receive Date: 20250127
  Receipt Date: 20250127
  Transmission Date: 20250409
  Serious: Yes (Other)
  Sender: VALIDUS
  Company Number: US-VALIDUS PHARMACEUTICALS LLC-US-VDP-2025-019535

PATIENT

DRUGS (3)
  1. FUROSEMIDE [Suspect]
     Active Substance: FUROSEMIDE
     Indication: Product used for unknown indication
     Route: 065
  2. VONOPRAZAN [Suspect]
     Active Substance: VONOPRAZAN
     Indication: Gastrooesophageal reflux disease
     Route: 048
  3. JARDIANCE [Suspect]
     Active Substance: EMPAGLIFLOZIN
     Indication: Product used for unknown indication
     Route: 065

REACTIONS (8)
  - Angina pectoris [Not Recovered/Not Resolved]
  - Feeling abnormal [Not Recovered/Not Resolved]
  - Pain in extremity [Not Recovered/Not Resolved]
  - Neck pain [Not Recovered/Not Resolved]
  - Pain [Not Recovered/Not Resolved]
  - Fatigue [Unknown]
  - Hypertension [Unknown]
  - Blood potassium decreased [Not Recovered/Not Resolved]

NARRATIVE: CASE EVENT DATE: 20240101
